FAERS Safety Report 20572938 (Version 3)
Quarter: 2022Q1

REPORT INFORMATION
  Report Type: Report from Study
  Country: US (occurrence: US)
  Receive Date: 20220309
  Receipt Date: 20220315
  Transmission Date: 20220423
  Serious: No
  Sender: FDA-Public Use
  Company Number: US-NOVARTISTESTPH-NVSC2022US054424

PATIENT
  Age: 39 Year
  Sex: Female

DRUGS (1)
  1. KESIMPTA [Suspect]
     Active Substance: OFATUMUMAB
     Indication: Multiple sclerosis
     Dosage: UNK
     Route: 058
     Dates: start: 20220305

REACTIONS (5)
  - Malaise [Recovered/Resolved]
  - Ear pain [Recovered/Resolved]
  - Neck pain [Recovered/Resolved]
  - Body temperature fluctuation [Unknown]
  - Pyrexia [Unknown]

NARRATIVE: CASE EVENT DATE: 20220305
